FAERS Safety Report 7559686-5 (Version None)
Quarter: 2011Q2

REPORT INFORMATION
  Report Type: 
  Country: None (occurrence: None)
  Receive Date: 20110621
  Receipt Date: 20110608
  Transmission Date: 20111010
  Serious: No
  Sender: FDA-Public Use
  Company Number: US-ELI_LILLY_AND_COMPANY-US201106003260

PATIENT
  Age: 8 Year
  Sex: Male

DRUGS (6)
  1. STRATTERA [Suspect]
     Dosage: 25 MG, UNK
  2. STRATTERA [Suspect]
     Indication: ATTENTION DEFICIT/HYPERACTIVITY DISORDER
     Dosage: 10 MG, UNK
     Dates: start: 20090901
  3. STRATTERA [Suspect]
     Dosage: 25 MG, UNK
     Dates: end: 20091101
  4. MAALOX [Concomitant]
     Indication: LAXATIVE SUPPORTIVE CARE
  5. CYPROHEPTADINE HCL [Concomitant]
     Indication: DECREASED APPETITE
  6. STRATTERA [Suspect]
     Dosage: 10 MG, UNK

REACTIONS (1)
  - ABDOMINAL PAIN [None]
